FAERS Safety Report 20442166 (Version 1)
Quarter: 2022Q1

REPORT INFORMATION
  Report Type: Spontaneous
  Country: US (occurrence: US)
  Receive Date: 20220208
  Receipt Date: 20220208
  Transmission Date: 20220424
  Serious: No
  Sender: FDA-Public Use
  Company Number: US-GLENMARK PHARMACEUTICALS-2021GMK067542

PATIENT

DRUGS (2)
  1. ADAPALENE [Suspect]
     Active Substance: ADAPALENE
     Indication: Acne
     Dosage: UNK (IT APPEARED TO BE WORKING)
     Route: 061
  2. ADAPALENE [Suspect]
     Active Substance: ADAPALENE
     Dosage: UNK (PURCHASED TWO MORE PRODUCTS WHICH DID NOT WORK)
     Route: 061

REACTIONS (3)
  - Acne [Unknown]
  - Drug ineffective [Unknown]
  - Product quality issue [Unknown]
